FAERS Safety Report 5632093-8 (Version None)
Quarter: 2008Q1

REPORT INFORMATION
  Report Type: 
  Country: None (occurrence: None)
  Receive Date: 20080220
  Receipt Date: 20080211
  Transmission Date: 20080703
  Serious: Yes (Other)
  Sender: FDA-Public Use
  Company Number: B0506967A

PATIENT
  Age: 60 Year
  Sex: Male
  Weight: 119 kg

DRUGS (6)
  1. AVANDAMET [Suspect]
     Route: 065
     Dates: start: 20071129, end: 20080122
  2. CARTIA XT [Concomitant]
     Dosage: 100MG PER DAY
  3. DIAMICRON [Concomitant]
     Dosage: 60MG PER DAY
  4. NOTEN [Concomitant]
     Dosage: 50MG PER DAY
  5. RAMACE [Concomitant]
     Dosage: 5MG PER DAY
  6. VYTORIN [Concomitant]

REACTIONS (2)
  - CHEST PAIN [None]
  - PAIN [None]
